APPROVED DRUG PRODUCT: CLINDAMYCIN PHOSPHATE IN DEXTROSE 5%
Active Ingredient: CLINDAMYCIN PHOSPHATE
Strength: EQ 900MG BASE/100ML
Dosage Form/Route: INJECTABLE;INJECTION
Application: N050635 | Product #001
Applicant: ABRAXIS PHARMACEUTICAL PRODUCTS
Approved: Dec 22, 1989 | RLD: Yes | RS: Yes | Type: RX